FAERS Safety Report 5311623-X (Version None)
Quarter: 2007Q2

REPORT INFORMATION
  Report Type: 
  Country: None (occurrence: None)
  Receive Date: 20070426
  Receipt Date: 20070426
  Transmission Date: 20071010
  Serious: Yes (Hospitalization)
  Sender: FDA-Public Use
  Company Number: None

PATIENT
  Sex: Male

DRUGS (18)
  1. BEVACIZUMAB (GENENTECH) [Suspect]
     Indication: GLIOBLASTOMA MULTIFORME
     Dosage: 10 MG/KG
     Dates: start: 20070328
  2. BEVACIZUMAB (GENENTECH) [Suspect]
     Indication: GLIOBLASTOMA MULTIFORME
     Dosage: 10 MG/KG
     Dates: start: 20070409
  3. ERLOTINIB (GENENTECH) [Suspect]
     Indication: GLIOBLASTOMA MULTIFORME
     Dosage: 200 MG/DAY
     Dates: start: 20070327
  4. DEXAMETHASONE 0.5MG TAB [Concomitant]
  5. LUNESTA [Concomitant]
  6. TYLENOL [Concomitant]
  7. POTASSIUM ACETATE [Concomitant]
  8. LASIX [Concomitant]
  9. VYTORIN [Concomitant]
  10. TOPROL-XL [Concomitant]
  11. HYTRIN [Concomitant]
  12. NITROGLYCERIN [Concomitant]
  13. ZANTAC [Concomitant]
  14. MUCINEX [Concomitant]
  15. ZADITOR [Concomitant]
  16. ASLELIN [Concomitant]
  17. EPINEPHRINE [Concomitant]
  18. SINGULAIR [Concomitant]

REACTIONS (10)
  - ABASIA [None]
  - ALOPECIA [None]
  - ASTHENIA [None]
  - BLOOD GLUCOSE INCREASED [None]
  - CRYING [None]
  - DYSPNOEA [None]
  - OEDEMA [None]
  - PNEUMONITIS [None]
  - RASH GENERALISED [None]
  - WOUND SECRETION [None]
